FAERS Safety Report 24348960 (Version 1)
Quarter: 2024Q3

REPORT INFORMATION
  Report Type: Spontaneous
  Country: CN (occurrence: CN)
  Receive Date: 20240923
  Receipt Date: 20240923
  Transmission Date: 20241016
  Serious: Yes (Other)
  Sender: NOVAST
  Company Number: CN-NOVAST LABORATORIES INC.-2024NOV000301

PATIENT

DRUGS (8)
  1. METFORMIN [Suspect]
     Active Substance: METFORMIN HYDROCHLORIDE
     Indication: Type 2 diabetes mellitus
     Dosage: 500 MILLIGRAM, BID
     Route: 048
     Dates: start: 202401
  2. METFORMIN [Suspect]
     Active Substance: METFORMIN HYDROCHLORIDE
     Dosage: 500 MILLIGRAM/0.5 DAY
     Route: 048
     Dates: start: 20240829, end: 20240904
  3. REPAGLINIDE [Suspect]
     Active Substance: REPAGLINIDE
     Indication: Type 2 diabetes mellitus
     Dosage: 1 MILLIGRAM, BID
     Route: 048
     Dates: start: 202401
  4. REPAGLINIDE [Suspect]
     Active Substance: REPAGLINIDE
     Dosage: 1 MILLIGRAM/0.5 DAY
     Route: 048
     Dates: start: 20240829, end: 20240904
  5. METHYLCOBALAMIN [Suspect]
     Active Substance: METHYLCOBALAMIN
     Indication: Diabetic autonomic neuropathy
     Dosage: 0.5 MILLIGRAM, TID
     Route: 048
     Dates: start: 202401
  6. METHYLCOBALAMIN [Suspect]
     Active Substance: METHYLCOBALAMIN
     Dosage: 0.5 MILLIGRAM/0.3 DAY
     Route: 048
     Dates: start: 20240829, end: 20240904
  7. DAPAGLIFLOZIN [Suspect]
     Active Substance: DAPAGLIFLOZIN
     Indication: Type 2 diabetes mellitus
     Dosage: 5 MILLIGRAM QT
     Route: 048
     Dates: start: 202401
  8. DAPAGLIFLOZIN [Suspect]
     Active Substance: DAPAGLIFLOZIN
     Dosage: 5 MILLIGRAM, PER DAY
     Route: 048
     Dates: start: 20240829, end: 20240904

REACTIONS (1)
  - Urticaria [Recovering/Resolving]
